FAERS Safety Report 10213733 (Version 1)
Quarter: 2014Q2

REPORT INFORMATION
  Report Type: Spontaneous
  Country: US (occurrence: None)
  Receive Date: 20140602
  Receipt Date: 20140602
  Transmission Date: 20141212
  Serious: Yes (Hospitalization)
  Sender: FDA-Public Use
  Company Number: DL2014-0448

PATIENT
  Age: 24 Year
  Sex: Female

DRUGS (2)
  1. MIFEPRISTONE [Suspect]
     Indication: ABORTION INDUCED
     Route: 048
     Dates: start: 20140513
  2. MISOPROSTOL [Suspect]
     Route: 067
     Dates: start: 20140515

REACTIONS (5)
  - Abortion incomplete [None]
  - Dizziness [None]
  - Hypotension [None]
  - Pyrexia [None]
  - Anaemia [None]
